FAERS Safety Report 16119618 (Version 1)
Quarter: 2019Q1

REPORT INFORMATION
  Report Type: Spontaneous
  Country: US (occurrence: US)
  Receive Date: 20190326
  Receipt Date: 20190326
  Transmission Date: 20190418
  Serious: No
  Sender: FDA-Public Use
  Company Number: PHHY2019US064333

PATIENT
  Age: 38 Year
  Sex: Female

DRUGS (1)
  1. SYSTANE ULTRA [Suspect]
     Active Substance: POLYETHYLENE GLYCOL 400\PROPYLENE GLYCOL
     Indication: DRY EYE
     Dosage: UNK UNK, QID
     Route: 047
     Dates: start: 20000101, end: 20000102

REACTIONS (2)
  - Eye pain [Recovered/Resolved]
  - Product dropper issue [Unknown]

NARRATIVE: CASE EVENT DATE: 20000101
